FAERS Safety Report 8225722-6 (Version None)
Quarter: 2012Q1

REPORT INFORMATION
  Report Type: 
  Country: None (occurrence: None)
  Receive Date: 20120321
  Receipt Date: 20120307
  Transmission Date: 20120608
  Serious: Yes (Hospitalization)
  Sender: FDA-Public Use
  Company Number: AU-CELGENEUS-008-50794-12022904

PATIENT
  Sex: Male
  Weight: 87 kg

DRUGS (9)
  1. ACETAMINOPHEN [Concomitant]
     Indication: ARTHRITIS
     Dosage: 2
     Route: 048
  2. SIMVASTATIN [Concomitant]
     Dosage: 20 MILLIGRAM
     Route: 048
     Dates: start: 20110926
  3. ACYCLOVIR [Concomitant]
     Indication: ANTIVIRAL PROPHYLAXIS
     Dosage: 200 MILLIGRAM
     Route: 048
     Dates: start: 20110926
  4. VIDAZA [Suspect]
     Dosage: 50 MILLIGRAM/SQ. METER
     Route: 058
     Dates: start: 20120220, end: 20120224
  5. ALLOPURINOL [Concomitant]
     Indication: GOUT
     Dosage: 100 MILLIGRAM
     Route: 048
  6. REVLIMID [Suspect]
     Dosage: 5 MILLIGRAM
     Route: 048
     Dates: start: 20120220
  7. VORICONAZOLE [Concomitant]
     Indication: PROPHYLAXIS
     Dosage: 200 MILLIGRAM
     Route: 048
     Dates: start: 20110926
  8. IRBESARTAN [Concomitant]
     Indication: HYPERTENSION
     Dosage: 150 MILLIGRAM
     Route: 048
     Dates: start: 20111019
  9. ATENOLOL [Concomitant]
     Indication: HYPERTENSION
     Dosage: 50 MILLIGRAM
     Route: 048

REACTIONS (2)
  - LARYNGEAL HAEMORRHAGE [None]
  - FEBRILE NEUTROPENIA [None]
